FAERS Safety Report 9500654 (Version 1)
Quarter: 2013Q3

REPORT INFORMATION
  Report Type: Spontaneous
  Country: DE (occurrence: DE)
  Receive Date: 20130905
  Receipt Date: 20130905
  Transmission Date: 20140515
  Serious: Yes (Other)
  Sender: FDA-Public Use
  Company Number: DE-ALEXION PHARMACEUTICALS INC.-A201302137

PATIENT
  Sex: 0

DRUGS (4)
  1. SOLIRIS 300MG [Suspect]
     Indication: HAEMOLYTIC URAEMIC SYNDROME
     Dosage: UNK
     Route: 042
     Dates: start: 201111
  2. SOLIRIS 300MG [Suspect]
     Dosage: UNK, CONTINUOUS
     Route: 042
     Dates: start: 201102
  3. SOLIRIS 300MG [Suspect]
     Dosage: TWICE THE AMOUNT RECOMMENDED, UNK
     Route: 042
     Dates: start: 201202
  4. SOLIRIS 300MG [Suspect]
     Dosage: UNK, WEEKLY
     Route: 042
     Dates: start: 201303

REACTIONS (12)
  - Haemolytic uraemic syndrome [Unknown]
  - Renal failure acute [Unknown]
  - Pancreatitis [Unknown]
  - Convulsion [Unknown]
  - Blood lactate dehydrogenase increased [Unknown]
  - Drug administration error [Unknown]
  - Infection [Unknown]
  - Thrombotic microangiopathy [Unknown]
  - Malignant hypertension [Unknown]
  - Drug ineffective [Unknown]
  - Diarrhoea [Unknown]
  - Vomiting [Unknown]
